FAERS Safety Report 10028677 (Version 1)
Quarter: 2014Q1

REPORT INFORMATION
  Report Type: Spontaneous
  Country: CH (occurrence: CH)
  Receive Date: 20140321
  Receipt Date: 20140321
  Transmission Date: 20141002
  Serious: Yes (Other)
  Sender: FDA-Public Use
  Company Number: CH-GLAXOSMITHKLINE-B0978585A

PATIENT
  Age: 39 Year
  Sex: Female

DRUGS (6)
  1. ZOFRAN [Suspect]
     Indication: PRODUCT USED FOR UNKNOWN INDICATION
     Route: 064
     Dates: start: 20130523, end: 20130725
  2. CARBOPLATIN [Suspect]
     Indication: CERVIX CARCINOMA
     Route: 064
     Dates: start: 20130523, end: 20130725
  3. TAXOL [Suspect]
     Indication: CERVIX CARCINOMA
     Route: 064
     Dates: start: 20130523, end: 20130725
  4. DEXAMETHASONE [Suspect]
     Indication: PRODUCT USED FOR UNKNOWN INDICATION
     Route: 064
     Dates: start: 20130522, end: 20130725
  5. TAVEGYL [Suspect]
     Indication: PRODUCT USED FOR UNKNOWN INDICATION
     Route: 064
     Dates: start: 20130523, end: 20130725
  6. MOTILIUM [Suspect]
     Indication: PRODUCT USED FOR UNKNOWN INDICATION
     Route: 064

REACTIONS (2)
  - Premature baby [Unknown]
  - Exposure during pregnancy [Unknown]
